FAERS Safety Report 23682016 (Version 1)
Quarter: 2024Q1

REPORT INFORMATION
  Report Type: Spontaneous
  Country: DE (occurrence: DE)
  Receive Date: 20240328
  Receipt Date: 20240328
  Transmission Date: 20240410
  Serious: Yes (Hospitalization, Disabling, Other)
  Sender: FDA-Public Use
  Company Number: None

PATIENT
  Sex: Male
  Weight: 150 kg

DRUGS (82)
  1. SPIRONOLACTONE [Suspect]
     Active Substance: SPIRONOLACTONE
     Indication: Cardiac failure
     Dosage: UNK
  2. VALSARTAN [Suspect]
     Active Substance: VALSARTAN
     Indication: Hypertension
     Dosage: 320MG/25MG, QD (DAILY IN THE MORNING)
     Dates: start: 201710, end: 201801
  3. AMIODARONE [Suspect]
     Active Substance: AMIODARONE
     Indication: Atrial fibrillation
     Dosage: UNK
  4. VALSARTAN [Suspect]
     Active Substance: VALSARTAN
     Indication: Hypertension
     Dosage: 320 MG, QD (IN THE MORNING)
  5. VALSARTAN [Suspect]
     Active Substance: VALSARTAN
     Indication: Hypertension
     Dosage: 320 MG
  6. SACUBITRIL\VALSARTAN [Suspect]
     Active Substance: SACUBITRIL\VALSARTAN
     Indication: Myocarditis
     Dosage: 100 MG, BID ((49/51 MG, MORNING AND EVENING))
  7. MEPIVACAINE HYDROCHLORIDE [Concomitant]
     Active Substance: MEPIVACAINE HYDROCHLORIDE
     Indication: Biopsy bone marrow
     Dosage: 15 ML WITH 1%
     Dates: start: 20191218, end: 20191218
  8. VERAPAMIL HYDROCHLORIDE [Concomitant]
     Active Substance: VERAPAMIL HYDROCHLORIDE
     Indication: Product used for unknown indication
     Dosage: 120 MG, TID (ONCE IN THE MORNING, ONCE AT NOON)
  9. HEPARIN [Concomitant]
     Active Substance: HEPARIN SODIUM
     Indication: Biopsy bone marrow
     Dosage: 15000 IU + 10000 IU
     Dates: start: 20150220, end: 20150220
  10. ALLOPURINOL [Concomitant]
     Active Substance: ALLOPURINOL
     Indication: Product used for unknown indication
     Dosage: 300 MG, QD (EVENING)
  11. HYDROCHLOROTHIAZIDE [Concomitant]
     Active Substance: HYDROCHLOROTHIAZIDE
     Indication: Product used for unknown indication
     Dosage: 2.5 MG, QD (ONCE DAILY IN THE MORNING)
     Dates: start: 201410
  12. VALSARTAN [Concomitant]
     Active Substance: VALSARTAN
     Indication: Product used for unknown indication
     Dosage: UNK, QD (320/25 MG, IN MORNING)
  13. TORSEMIDE [Concomitant]
     Active Substance: TORSEMIDE
     Indication: Product used for unknown indication
     Dosage: 40 MG, QD (ONCE DAILY IN THE MORNING (1-0-0))
  14. DEXAMETHASONE [Concomitant]
     Active Substance: DEXAMETHASONE
     Indication: Product used for unknown indication
     Dosage: 4 MG
     Dates: start: 201507
  15. TORSEMIDE [Concomitant]
     Active Substance: TORSEMIDE
     Indication: Product used for unknown indication
     Dosage: 5 MG, QD (ONCE DAILY IN THE MORNING (1-0-0)
  16. PANTOPRAZOLE [Concomitant]
     Active Substance: PANTOPRAZOLE
     Indication: Product used for unknown indication
     Dosage: 20 MG, QD
  17. BISOPROLOL [Concomitant]
     Active Substance: BISOPROLOL\BISOPROLOL FUMARATE
     Indication: Product used for unknown indication
     Dosage: 7.5, QD
  18. DIPYRONE [Concomitant]
     Active Substance: DIPYRONE
     Indication: Product used for unknown indication
     Dosage: 4 DOSAGE FORM, QD (500 MG / 30 GTT)
  19. OXYGEN [Concomitant]
     Active Substance: OXYGEN
     Indication: Biopsy bone marrow
     Dosage: 2 L UP TO 6 L
     Dates: start: 20191218, end: 20191218
  20. CANDESARTAN [Concomitant]
     Active Substance: CANDESARTAN
     Indication: Hypertension
     Dosage: 32 MG, QD (ONCE DAILY IN THE MORNING (1-0-0))
  21. FUROSEMIDE [Concomitant]
     Active Substance: FUROSEMIDE
     Indication: Product used for unknown indication
     Dosage: 500 MG
  22. PROPOFOL [Concomitant]
     Active Substance: PROPOFOL
     Indication: Anaesthesia
     Dosage: 280 MG
     Dates: start: 20191213, end: 20191213
  23. AMIODARONE [Concomitant]
     Active Substance: AMIODARONE
     Indication: Product used for unknown indication
     Dosage: UNK (200)
     Dates: start: 201411
  24. TORASEMIDE HEX [Concomitant]
     Indication: Product used for unknown indication
     Dosage: 10 MG
     Dates: start: 201412
  25. BEPANTHEN [Concomitant]
     Indication: Product used for unknown indication
     Dosage: UNK (WOUND AND HEALING, AS NEEDED)
  26. AJMALINE ISEI [Concomitant]
     Indication: Product used for unknown indication
     Dosage: 80 MG
     Dates: start: 20150220, end: 20150220
  27. LASIX [Concomitant]
     Active Substance: FUROSEMIDE
     Indication: Product used for unknown indication
     Dosage: 40 MG (ONCE DOSE IN THE MORNING
     Dates: start: 201912, end: 201912
  28. PIROXICAM [Concomitant]
     Active Substance: PIROXICAM
     Indication: Product used for unknown indication
     Dosage: 20 MG
     Dates: start: 201507
  29. NOVODIGAL [Concomitant]
     Indication: Product used for unknown indication
     Dosage: UNK 0.1, QD (ONCE IN THE MORNING (1-0-0))
     Dates: start: 201410
  30. FENTANYL [Concomitant]
     Active Substance: FENTANYL\FENTANYL CITRATE
     Indication: Product used for unknown indication
     Dosage: 25 UG
     Dates: start: 20150220, end: 20150220
  31. HYDROCHLOROTHIAZIDE [Concomitant]
     Active Substance: HYDROCHLOROTHIAZIDE
     Indication: Product used for unknown indication
     Dosage: 2.5 MG, BID
  32. BISOPROLOL FUMARATE [Concomitant]
     Active Substance: BISOPROLOL FUMARATE
     Indication: Product used for unknown indication
     Dosage: UNK, QD (HALF X 5 MG)
  33. ZOPICLONE [Concomitant]
     Active Substance: ZOPICLONE
     Indication: Product used for unknown indication
     Dosage: 7.5 MG, PRN  (AS NEEDED)
  34. NITRENDIPINE [Concomitant]
     Active Substance: NITRENDIPINE
     Indication: Product used for unknown indication
     Dosage: UNK
     Dates: start: 201910
  35. OMEPRAZOLE [Concomitant]
     Active Substance: OMEPRAZOLE
     Indication: Product used for unknown indication
     Dosage: 20 MG, QD (MORNING)
  36. RAMIPRIL [Concomitant]
     Active Substance: RAMIPRIL
     Indication: Product used for unknown indication
     Dosage: 5 MG (HALF OF A DOSAGE IN THE MORNING
     Dates: start: 201410
  37. BISOPROLOL [Concomitant]
     Active Substance: BISOPROLOL\BISOPROLOL FUMARATE
     Indication: Product used for unknown indication
     Dosage: 5, BID (IN THE MORNING, ONCE IN THE EVENING (1-0-1))
     Dates: start: 201504
  38. BISOPROLOL FUMARATE [Concomitant]
     Active Substance: BISOPROLOL FUMARATE
     Indication: Product used for unknown indication
     Dosage: 5 MG, BID (ONCE IN THE MORNING, ONCE IN THE EVENING (1-0-1))
  39. NASICUR [Concomitant]
     Indication: Product used for unknown indication
     Dosage: UNK, AS NEEDED (NOSE)
     Dates: start: 201911
  40. RAMIPRIL [Concomitant]
     Active Substance: RAMIPRIL
     Indication: Product used for unknown indication
     Dosage: 2.5 MG, QD (ONCE DAILY IN THE MORNING (1-0-0))
  41. NOVALGIN [Concomitant]
     Indication: Product used for unknown indication
     Dosage: 500 MG (4X DAILY IF NEEDED)
  42. CANDESARTAN HEXETIL [Concomitant]
     Indication: Hypertension
     Dosage: UNK
  43. JELLIPROCT [Concomitant]
     Indication: Product used for unknown indication
     Dosage: UNK
     Dates: start: 201901
  44. VALSARTAN [Concomitant]
     Active Substance: VALSARTAN
     Indication: Product used for unknown indication
     Dosage: UNK, QD (320/25 MG, IN MORNING)
  45. VALSARTAN [Concomitant]
     Active Substance: VALSARTAN
     Indication: Product used for unknown indication
     Dosage: UNK, QD (320/25 MG, IN MORNING)
  46. TORSEMIDE [Concomitant]
     Active Substance: TORSEMIDE
     Indication: Product used for unknown indication
     Dosage: 10 MG, BID (ONCE IN THE MORNING, ONCE AT NOON (1-1-0))
  47. TORSEMIDE [Concomitant]
     Active Substance: TORSEMIDE
     Indication: Product used for unknown indication
     Dosage: 5 MG, QD (ONCE DAILY IN THE MORNING (1-0-0)
  48. TORSEMIDE [Concomitant]
     Active Substance: TORSEMIDE
     Indication: Product used for unknown indication
     Dosage: UNK (ONE DOSE IN THE MORNING, HALF OF A DOSAGE AT NOON (1-1/2-0))
     Dates: start: 201411
  49. BISOPROLOL [Concomitant]
     Active Substance: BISOPROLOL\BISOPROLOL FUMARATE
     Indication: Product used for unknown indication
     Dosage: UNK, BID (1.5 OF A DOSAGE IN THE MORNING,
  50. BISOPROLOL [Concomitant]
     Active Substance: BISOPROLOL\BISOPROLOL FUMARATE
     Indication: Product used for unknown indication
     Dosage: 5 MG, BID (FILM-COATED TABLETS, MORNING AND EVENING))
  51. BISOPROLOL [Concomitant]
     Active Substance: BISOPROLOL\BISOPROLOL FUMARATE
     Indication: Product used for unknown indication
     Dosage: 7.5, QD
  52. BISOPROLOL [Concomitant]
     Active Substance: BISOPROLOL\BISOPROLOL FUMARATE
     Indication: Product used for unknown indication
     Dosage: UNK, QD (MORNING)
  53. BISOPROLOL [Concomitant]
     Active Substance: BISOPROLOL\BISOPROLOL FUMARATE
     Indication: Product used for unknown indication
     Dosage: UNK, QD (1.5X 2.5 MG, MORNING)
  54. BISOPROLOL [Concomitant]
     Active Substance: BISOPROLOL\BISOPROLOL FUMARATE
     Indication: Product used for unknown indication
     Dosage: UNK, QD (1.5X 2.5 MG, MORNING)
  55. BISOPROLOL [Concomitant]
     Active Substance: BISOPROLOL\BISOPROLOL FUMARATE
     Indication: Product used for unknown indication
     Dosage: 5 MG (1 DOSAGE IN THE MORNING, HALF OF A DOSAGE IN THE EVENING (1-0-1/2))
  56. BISOPROLOL [Concomitant]
     Active Substance: BISOPROLOL\BISOPROLOL FUMARATE
     Indication: Product used for unknown indication
     Dosage: UNK, BID (1.5 OF A DOSAGE IN THE MORNING, 1 DOSAGE IN THE EVENING (1.5-0-1)
  57. BISOPROLOL [Concomitant]
     Active Substance: BISOPROLOL\BISOPROLOL FUMARATE
     Indication: Product used for unknown indication
     Dosage: 2.5 MG (1.5 OF A DOSAGE IN THE MORNING, 1 DOSAGE IN THE EVENING (1.5-0-1))
  58. BISOPROLOL [Concomitant]
     Active Substance: BISOPROLOL\BISOPROLOL FUMARATE
     Indication: Product used for unknown indication
     Dosage: 7.5, QD
  59. BISOPROLOL [Concomitant]
     Active Substance: BISOPROLOL\BISOPROLOL FUMARATE
     Indication: Product used for unknown indication
     Dosage: 2.5 MG, BID (ONCE IN THE MORNING,
  60. BISOPROLOL [Concomitant]
     Active Substance: BISOPROLOL\BISOPROLOL FUMARATE
     Indication: Product used for unknown indication
     Dosage: UNK, QD (MORNING)
  61. BISOPROLOL [Concomitant]
     Active Substance: BISOPROLOL\BISOPROLOL FUMARATE
     Indication: Product used for unknown indication
     Dosage: UNK, BID (1.5 OF A DOSAGE IN THE MORNING,
  62. BISOPROLOL [Concomitant]
     Active Substance: BISOPROLOL\BISOPROLOL FUMARATE
     Indication: Product used for unknown indication
     Dosage: UNK, QD (1.5X 2.5 MG, MORNING)
  63. BISOPROLOL [Concomitant]
     Active Substance: BISOPROLOL\BISOPROLOL FUMARATE
     Indication: Product used for unknown indication
     Dosage: 2 DOSAGE FORM, BID (TWICE IN THE MORNING, TWICE IN THE EVENING (2-0-2)
  64. BISOPROLOL [Concomitant]
     Active Substance: BISOPROLOL\BISOPROLOL FUMARATE
     Indication: Product used for unknown indication
     Dosage: UNK, QD (MORNING)
  65. FUROSEMIDE [Concomitant]
     Active Substance: FUROSEMIDE
     Indication: Product used for unknown indication
     Dosage: 40 MG, QD (IN THE MORNING (1-0-0))
     Dates: start: 201910
  66. FUROSEMIDE [Concomitant]
     Active Substance: FUROSEMIDE
     Indication: Product used for unknown indication
     Dosage: UNK (20)
  67. FUROSEMIDE [Concomitant]
     Active Substance: FUROSEMIDE
     Indication: Product used for unknown indication
     Dosage: UNK (20)
  68. PROPOFOL [Concomitant]
     Active Substance: PROPOFOL
     Indication: Anaesthesia
     Dosage: 310 MG
     Dates: start: 20191218, end: 20191218
  69. PROPOFOL [Concomitant]
     Active Substance: PROPOFOL
     Indication: Anaesthesia
     Dosage: 2 %
     Dates: start: 20150220, end: 20150220
  70. MEPIVACAINE HYDROCHLORIDE [Concomitant]
     Active Substance: MEPIVACAINE HYDROCHLORIDE
     Indication: Biopsy bone marrow
     Dates: start: 20150220, end: 20150220
  71. VALSARTAN [Suspect]
     Active Substance: VALSARTAN
     Indication: Hypertension
     Dosage: 80 MG, QD (DAILY IN THE MORNING)
     Dates: start: 201412, end: 2015
  72. VALSARTAN [Suspect]
     Active Substance: VALSARTAN
     Indication: Hypertension
     Dosage: 80 MG (DAILY IN THE MORNING / ONE DOSE IN THE MORNING
     Dates: start: 201411, end: 2015
  73. VALSARTAN [Suspect]
     Active Substance: VALSARTAN
     Indication: Hypertension
     Dosage: 320/25 MG, QD (DAILY IN THE MORNING)
     Dates: start: 201707, end: 201710
  74. SACUBITRIL\VALSARTAN [Suspect]
     Active Substance: SACUBITRIL\VALSARTAN
     Indication: Myocarditis
     Dosage: 200 MG, BID (97/103 MG, MORNING AND EVENIN)
  75. VALSARTAN [Suspect]
     Active Substance: VALSARTAN
     Indication: Hypertension
     Dosage: 320/25 MG, QD (DAILY IN THE MORNING)
     Dates: start: 201801, end: 201804
  76. VALSARTAN [Suspect]
     Active Substance: VALSARTAN
     Indication: Hypertension
     Dosage: 320/25 MG, QD (DAILY IN THE MORNING)
     Dates: start: 201607, end: 201704
  77. VALSARTAN [Suspect]
     Active Substance: VALSARTAN
     Indication: Hypertension
     Dosage: 320/25 MG, QD (DAILY IN THE MORNING)
     Dates: start: 20150831, end: 201605
  78. VALSARTAN [Suspect]
     Active Substance: VALSARTAN
     Indication: Hypertension
     Dosage: 25 MG, QD
     Dates: start: 2015
  79. VALSARTAN [Suspect]
     Active Substance: VALSARTAN
     Indication: Hypertension
     Dosage: UNK, BID (ONCE IN THE MORNING, ONCE IN THE EVENING (1-0-1))
  80. BEPANTHEN [Concomitant]
     Indication: Product used for unknown indication
     Dosage: UNK (WOUND AND HEALING, AS NEEDED)
  81. BEPANTHEN [Concomitant]
     Indication: Product used for unknown indication
     Dosage: UNK (WOUND AND HEALING, AS NEEDED)
  82. LASIX [Concomitant]
     Active Substance: FUROSEMIDE
     Indication: Product used for unknown indication
     Dosage: 20 MG
     Dates: start: 201912, end: 201912

REACTIONS (72)
  - Obstructive sleep apnoea syndrome [Unknown]
  - Memory impairment [Unknown]
  - Escherichia bacteraemia [Unknown]
  - Depression [Unknown]
  - Emotional distress [Unknown]
  - Dilated cardiomyopathy [Unknown]
  - Product use in unapproved indication [Unknown]
  - Gout [Unknown]
  - Gastrointestinal neoplasm [Unknown]
  - Urinary incontinence [Unknown]
  - Goitre [Unknown]
  - Gastrointestinal dysplasia [Unknown]
  - Colon neoplasm [Unknown]
  - Gait disturbance [Unknown]
  - Tricuspid valve incompetence [Unknown]
  - Bundle branch block left [Unknown]
  - General physical health deterioration [Unknown]
  - Ascites [Unknown]
  - Multiple sclerosis [Unknown]
  - Quality of life decreased [Unknown]
  - Mitral valve incompetence [Unknown]
  - Haemorrhoidal haemorrhage [Unknown]
  - Somnolence [Unknown]
  - Sleep disorder [Unknown]
  - Rheumatoid arthritis [Unknown]
  - Cardiac dysfunction [Unknown]
  - Pulmonary congestion [Unknown]
  - Atrial fibrillation [Unknown]
  - Ulcer [Recovered/Resolved]
  - Aortic valve incompetence [Unknown]
  - Ventricular enlargement [Unknown]
  - Acute kidney injury [Unknown]
  - Middle insomnia [Unknown]
  - Pruritus [Unknown]
  - Myocardial infarction [Unknown]
  - Myocardial necrosis marker increased [Unknown]
  - Rectal neoplasm [Unknown]
  - Adenoma benign [Unknown]
  - Metabolic syndrome [Unknown]
  - Sinonasal obstruction [Unknown]
  - Urinary tract infection [Unknown]
  - Waldenstrom^s macroglobulinaemia [Unknown]
  - Insomnia [Unknown]
  - Inguinal hernia [Unknown]
  - Gastrointestinal tract adenoma [Unknown]
  - Hypotension [Unknown]
  - Deafness [Unknown]
  - Hypothyroidism [Unknown]
  - Respiratory disorder [Unknown]
  - Ventricular extrasystoles [Unknown]
  - Left ventricular dysfunction [Unknown]
  - Motor dysfunction [Unknown]
  - Tracheal disorder [Unknown]
  - Discouragement [Unknown]
  - Gastritis erosive [Unknown]
  - Arthralgia [Unknown]
  - Body fat disorder [Unknown]
  - Myocarditis [Unknown]
  - Dyspnoea at rest [Recovered/Resolved]
  - Cough [Unknown]
  - Panic attack [Unknown]
  - Small intestine adenocarcinoma [Unknown]
  - Hyperthyroidism [Unknown]
  - Developmental hip dysplasia [Unknown]
  - Sphincter of Oddi dysfunction [Unknown]
  - Gastrooesophageal reflux disease [Unknown]
  - Palpitations [Unknown]
  - Dyspnoea exertional [Unknown]
  - Cardiovascular disorder [Unknown]
  - Pleural effusion [Unknown]
  - Gammopathy [Unknown]
  - Cholecystitis chronic [Unknown]
